FAERS Safety Report 4716061-6 (Version None)
Quarter: 2005Q3

REPORT INFORMATION
  Report Type: 
  Country: None (occurrence: None)
  Receive Date: 20050718
  Receipt Date: 20050711
  Transmission Date: 20060218
  Serious: Yes (Other)
  Sender: FDA-Public Use
  Company Number: GB-BRISTOL-MYERS SQUIBB COMPANY-13031737

PATIENT
  Age: 40 Year
  Sex: Male

DRUGS (4)
  1. EFAVIRENZ [Suspect]
     Indication: HIV INFECTION
  2. TENOFOVIR [Suspect]
     Indication: HIV INFECTION
  3. LAMIVUDINE [Suspect]
     Indication: HIV INFECTION
  4. CO-TRIMOXAZOLE [Suspect]

REACTIONS (4)
  - HYPERSENSITIVITY [None]
  - LEUKOCYTURIA [None]
  - RENAL FAILURE ACUTE [None]
  - TUBERCULOSIS [None]
